FAERS Safety Report 15739349 (Version 1)
Quarter: 2018Q4

REPORT INFORMATION
  Report Type: Spontaneous
  Country: US (occurrence: US)
  Receive Date: 20181218
  Receipt Date: 20181218
  Transmission Date: 20190205
  Serious: Yes (Life-Threatening, Hospitalization, Disabling, Other)
  Sender: FDA-Public Use
  Company Number: None

PATIENT
  Age: 72 Year
  Sex: Male
  Weight: 67.95 kg

DRUGS (10)
  1. ISOPROBIDE [Concomitant]
  2. MIRCERA [Suspect]
     Active Substance: METHOXY POLYETHYLENE GLYCOL-EPOETIN BETA
     Indication: ANAEMIA
     Dates: start: 20181213
  3. ALLOPURINOL. [Concomitant]
     Active Substance: ALLOPURINOL
  4. NIFEDIPINE. [Concomitant]
     Active Substance: NIFEDIPINE
  5. RENAL ULTI-VIT [Concomitant]
  6. ATROVASTATIN [Concomitant]
     Active Substance: ATORVASTATIN CALCIUM
  7. SEVELAMER CARBONATE. [Concomitant]
     Active Substance: SEVELAMER CARBONATE
  8. FUROSEMIDE. [Concomitant]
     Active Substance: FUROSEMIDE
  9. HYDRALAZINE [Concomitant]
     Active Substance: HYDRALAZINE HYDROCHLORIDE
  10. ERGOCALCIFEROL. [Concomitant]
     Active Substance: ERGOCALCIFEROL

REACTIONS (2)
  - Unresponsive to stimuli [None]
  - Unevaluable event [None]

NARRATIVE: CASE EVENT DATE: 20181213
